FAERS Safety Report 7493416-0 (Version None)
Quarter: 2011Q2

REPORT INFORMATION
  Report Type: 
  Country: None (occurrence: None)
  Receive Date: 20110520
  Receipt Date: 20110506
  Transmission Date: 20111010
  Serious: Yes (Hospitalization)
  Sender: FDA-Public Use
  Company Number: GB-MYLANLABS-2011S1009524

PATIENT
  Sex: Male

DRUGS (5)
  1. LEVETIRACETAM [Suspect]
     Indication: PRODUCT USED FOR UNKNOWN INDICATION
  2. THIOPENTAL SODIUM [Concomitant]
     Indication: PRODUCT USED FOR UNKNOWN INDICATION
  3. VITAMIN K TAB [Concomitant]
     Indication: PRODUCT USED FOR UNKNOWN INDICATION
  4. DIAZEPAM [Concomitant]
     Indication: PRODUCT USED FOR UNKNOWN INDICATION
  5. LAMOTRIGINE [Suspect]
     Indication: PRODUCT USED FOR UNKNOWN INDICATION

REACTIONS (12)
  - ACUTE HEPATIC FAILURE [None]
  - APHASIA [None]
  - NEUROLOGICAL DECOMPENSATION [None]
  - ENCEPHALOPATHY [None]
  - MOVEMENT DISORDER [None]
  - HYPERPYREXIA [None]
  - METABOLIC ACIDOSIS [None]
  - AUTISM [None]
  - RHABDOMYOLYSIS [None]
  - DEVELOPMENTAL DELAY [None]
  - CONVULSION [None]
  - STATUS EPILEPTICUS [None]
